FAERS Safety Report 23654378 (Version 1)
Quarter: 2024Q1

REPORT INFORMATION
  Report Type: Spontaneous
  Country: AU (occurrence: AU)
  Receive Date: 20240320
  Receipt Date: 20240320
  Transmission Date: 20240409
  Serious: Yes (Other)
  Sender: FDA-Public Use
  Company Number: None

PATIENT
  Age: 54 Year
  Sex: Female

DRUGS (4)
  1. PREDNISOLONE [Suspect]
     Active Substance: PREDNISOLONE
     Indication: Linear IgA disease
     Dosage: 5 MILLIGRAM PER DAY
     Route: 065
  2. PREDNISOLONE [Suspect]
     Active Substance: PREDNISOLONE
     Dosage: 20 MILLIGRAM PER DAY
     Route: 065
  3. PREDNISOLONE ACETATE [Suspect]
     Active Substance: PREDNISOLONE ACETATE
     Indication: Linear IgA disease
     Dosage: UNK
     Route: 061
  4. MYCOPHENOLATE SODIUM [Suspect]
     Active Substance: MYCOPHENOLATE SODIUM
     Indication: Linear IgA disease
     Dosage: 720 MILLIGRAM, EVERY 12 HRS
     Route: 065

REACTIONS (4)
  - Retinal pigment epitheliopathy [Recovered/Resolved]
  - Condition aggravated [Recovered/Resolved]
  - Infective keratitis [Recovered/Resolved]
  - Microsporidia infection [Recovered/Resolved]
